FAERS Safety Report 10340164 (Version 2)
Quarter: 2014Q3

REPORT INFORMATION
  Report Type: Spontaneous
  Country: US (occurrence: US)
  Receive Date: 20140724
  Receipt Date: 20140801
  Transmission Date: 20150326
  Serious: Yes (Hospitalization)
  Sender: FDA-Public Use
  Company Number: US-BRISTOL-MYERS SQUIBB COMPANY-21193347

PATIENT
  Age: 53 Year
  Sex: Female
  Weight: 113.6 kg

DRUGS (17)
  1. MAGNESIUM OXIDE. [Concomitant]
     Active Substance: MAGNESIUM OXIDE
  2. OXYCODONE [Concomitant]
     Active Substance: OXYCODONE
  3. MINOXIDIL. [Concomitant]
     Active Substance: MINOXIDIL
  4. MIFEPRISTONE [Interacting]
     Active Substance: MIFEPRISTONE
     Indication: ADRENAL GLAND CANCER
     Dosage: 300 MG;QOD;PO-03/27/2014?300 MG;QD;PO-10/04/2014 - 20/05/2014
     Route: 048
     Dates: start: 20140307
  5. TRAMADOL [Concomitant]
     Active Substance: TRAMADOL
  6. MECLIZINE [Concomitant]
     Active Substance: MECLIZINE\MECLIZINE HYDROCHLORIDE
  7. MITOTANE [Suspect]
     Active Substance: MITOTANE
     Indication: ADRENAL GLAND CANCER
  8. LANTUS [Concomitant]
     Active Substance: INSULIN GLARGINE
  9. FUROSEMIDE. [Concomitant]
     Active Substance: FUROSEMIDE
  10. TADALAFIL [Concomitant]
     Active Substance: TADALAFIL
  11. POTASSIUM [Concomitant]
     Active Substance: POTASSIUM
  12. MUCINEX [Concomitant]
     Active Substance: GUAIFENESIN
  13. BYSTOLIC [Concomitant]
     Active Substance: NEBIVOLOL HYDROCHLORIDE
  14. MAGNESIUM OXIDE. [Concomitant]
     Active Substance: MAGNESIUM OXIDE
  15. ACETAMINOPHEN. [Concomitant]
     Active Substance: ACETAMINOPHEN
  16. METOLAZONE. [Concomitant]
     Active Substance: METOLAZONE
  17. HUMALOG [Concomitant]
     Active Substance: INSULIN LISPRO

REACTIONS (4)
  - Oedema peripheral [Unknown]
  - Drug interaction [Unknown]
  - Hypokalaemia [Unknown]
  - Vomiting [Unknown]

NARRATIVE: CASE EVENT DATE: 20140327
